FAERS Safety Report 4829433-6 (Version None)
Quarter: 2005Q4

REPORT INFORMATION
  Report Type: 
  Country: None (occurrence: None)
  Receive Date: 20051116
  Receipt Date: 20051110
  Transmission Date: 20060501
  Serious: Yes (Hospitalization, Disabling)
  Sender: FDA-Public Use
  Company Number: US-MERCK-0511USA01911

PATIENT
  Age: 55 Year
  Sex: Female
  Weight: 85 kg

DRUGS (6)
  1. VIOXX [Suspect]
     Indication: ARTHRITIS
     Route: 048
     Dates: start: 20020118, end: 20020216
  2. VIOXX [Suspect]
     Route: 048
     Dates: start: 20020915, end: 20031103
  3. VIOXX [Suspect]
     Indication: PAIN IN EXTREMITY
     Route: 048
     Dates: start: 20020118, end: 20020216
  4. VIOXX [Suspect]
     Route: 048
     Dates: start: 20020915, end: 20031103
  5. ASPIRIN [Concomitant]
     Route: 065
  6. VITAMINS (UNSPECIFIED) [Concomitant]
     Route: 065

REACTIONS (11)
  - APHASIA [None]
  - BLOOD GLUCOSE DECREASED [None]
  - CEREBRAL ARTERY OCCLUSION [None]
  - CEREBROVASCULAR ACCIDENT [None]
  - CONFUSIONAL STATE [None]
  - CORONARY ARTERY OCCLUSION [None]
  - DEHYDRATION [None]
  - DYSPNOEA [None]
  - PAIN [None]
  - PEPTIC ULCER [None]
  - ROAD TRAFFIC ACCIDENT [None]
